FAERS Safety Report 4355414-5 (Version None)
Quarter: 2004Q2

REPORT INFORMATION
  Report Type: 
  Country: None (occurrence: None)
  Receive Date: 20040504
  Receipt Date: 20040420
  Transmission Date: 20050107
  Serious: Yes (Other)
  Sender: FDA-Public Use
  Company Number: A0497137A

PATIENT
  Age: 39 Year
  Sex: Female

DRUGS (5)
  1. NICODERM CQ [Suspect]
     Dosage: 14 MG/ PER DAY/TRANSDERMAL
     Route: 062
     Dates: start: 20040101, end: 20040112
  2. NICODERM CQ [Suspect]
     Indication: EX-SMOKER
     Dosage: 4 MG/PER DAY/INHALED
     Route: 055
     Dates: start: 20040101, end: 20040112
  3. CEPHALEXIN [Concomitant]
  4. INHALER [Concomitant]
  5. STEROID [Concomitant]

REACTIONS (7)
  - ANXIETY [None]
  - CIRCULATORY COLLAPSE [None]
  - DEPRESSION [None]
  - DYSPNOEA [None]
  - FEELING ABNORMAL [None]
  - PALPITATIONS [None]
  - TOBACCO WITHDRAWAL SYMPTOMS [None]
